FAERS Safety Report 17779216 (Version 2)
Quarter: 2020Q3

REPORT INFORMATION
  Report Type: Spontaneous
  Country: PT (occurrence: PT)
  Receive Date: 20200513
  Receipt Date: 20200715
  Transmission Date: 20201102
  Serious: Yes (Hospitalization, Other)
  Sender: FDA-Public Use
  Company Number: PT-MYLANLABS-2020M1045893

PATIENT
  Sex: Male

DRUGS (4)
  1. PHENOBARBITAL. [Interacting]
     Active Substance: PHENOBARBITAL
     Indication: PRODUCT USED FOR UNKNOWN INDICATION
     Dosage: UNK
     Route: 042
  2. ACICLOVIR [Concomitant]
     Active Substance: ACYCLOVIR
     Indication: PRODUCT USED FOR UNKNOWN INDICATION
     Dosage: UNK
  3. FLUOXETINE [Suspect]
     Active Substance: FLUOXETINE HYDROCHLORIDE
     Indication: DEPRESSION
     Dosage: UNK
     Route: 064
  4. DIAZEPAM. [Interacting]
     Active Substance: DIAZEPAM
     Indication: DEPRESSION
     Dosage: UNK
     Route: 064

REACTIONS (14)
  - Drug withdrawal syndrome neonatal [Unknown]
  - Floppy infant [Unknown]
  - Neurological examination abnormal [Recovered/Resolved]
  - Myoclonus [Recovered/Resolved]
  - Neonatal hypoxia [Recovered/Resolved]
  - Drug interaction [Unknown]
  - Primitive reflex test positive [Recovered/Resolved]
  - Hypotonia neonatal [Recovered/Resolved]
  - Foetal exposure during pregnancy [Recovered/Resolved]
  - Poor feeding infant [Recovered/Resolved]
  - Bradypnoea [Recovered/Resolved]
  - Irregular breathing [Recovered/Resolved]
  - Poor sucking reflex [Recovered/Resolved]
  - Tremor neonatal [Recovered/Resolved]
